FAERS Safety Report 24279426 (Version 2)
Quarter: 2024Q3

REPORT INFORMATION
  Report Type: Spontaneous
  Country: DK (occurrence: DK)
  Receive Date: 20240903
  Receipt Date: 20240906
  Transmission Date: 20241017
  Serious: Yes (Other)
  Sender: ABBVIE
  Company Number: DK-LUNDBECK-DKLU4003685

PATIENT

DRUGS (2)
  1. LEXAPRO [Suspect]
     Active Substance: ESCITALOPRAM OXALATE
     Indication: Anxiety
     Dosage: 5 MILLIGRAM
     Route: 048
  2. ALPRAZOLAM [Concomitant]
     Active Substance: ALPRAZOLAM
     Indication: Anxiety disorder
     Dosage: 0.5 MILLIGRAM

REACTIONS (5)
  - Erectile dysfunction [Not Recovered/Not Resolved]
  - Bruxism [Not Recovered/Not Resolved]
  - Adverse drug reaction [Not Recovered/Not Resolved]
  - Tension [Recovered/Resolved]
  - Headache [Not Recovered/Not Resolved]
